FAERS Safety Report 22240208 (Version 4)
Quarter: 2023Q2

REPORT INFORMATION
  Report Type: Report from Study
  Country: MY (occurrence: MY)
  Receive Date: 20230421
  Receipt Date: 20230627
  Transmission Date: 20230722
  Serious: Yes (Death)
  Sender: FDA-Public Use
  Company Number: MY-JNJFOC-20230445270

PATIENT
  Age: 37 Year
  Sex: Female

DRUGS (4)
  1. ESKETAMINE [Suspect]
     Active Substance: ESKETAMINE
     Indication: Depression
     Dates: start: 202012, end: 20220510
  2. ESKETAMINE [Suspect]
     Active Substance: ESKETAMINE
     Indication: Suicidal ideation
  3. MIRTAZAPINE [Concomitant]
     Active Substance: MIRTAZAPINE
  4. BREXPIPRAZOLE [Concomitant]
     Active Substance: BREXPIPRAZOLE

REACTIONS (1)
  - Suspected suicide [Fatal]

NARRATIVE: CASE EVENT DATE: 20220520
